FAERS Safety Report 8834288 (Version 3)
Quarter: 2012Q4

REPORT INFORMATION
  Report Type: Report from Study
  Country: GB (occurrence: GB)
  Receive Date: 20121010
  Receipt Date: 20121130
  Transmission Date: 20130627
  Serious: Yes (Death)
  Sender: FDA-Public Use
  Company Number: GB-ABBOTT-12P-167-0993279-00

PATIENT
  Age: 73 Year
  Sex: Female
  Weight: 50 kg

DRUGS (2)
  1. HUMIRA [Suspect]
     Indication: RHEUMATOID ARTHRITIS
     Route: 058
     Dates: start: 20070115
  2. STEROIDS [Concomitant]
     Indication: PRODUCT USED FOR UNKNOWN INDICATION

REACTIONS (10)
  - Cardiac arrest [Fatal]
  - Infected skin ulcer [Fatal]
  - Haemorrhage [Fatal]
  - Hypovolaemia [Fatal]
  - Localised infection [Fatal]
  - Pseudomonas infection [Fatal]
  - Candidiasis [Fatal]
  - Localised infection [Fatal]
  - Knee arthroplasty [Fatal]
  - Device related sepsis [Fatal]
